FAERS Safety Report 4737118-X (Version None)
Quarter: 2005Q3

REPORT INFORMATION
  Report Type: 
  Country: None (occurrence: None)
  Receive Date: 20050804
  Receipt Date: 20050718
  Transmission Date: 20060218
  Serious: Yes (Life-Threatening)
  Sender: FDA-Public Use
  Company Number: B0388677A

PATIENT
  Age: 17 Year
  Sex: Female

DRUGS (2)
  1. ACETAMINOPHEN [Suspect]
     Dates: start: 20050621
  2. CITALOPRAM (FORMULATION UNKNOWN) (CITALOPRAM) [Suspect]
     Indication: DEPRESSION
     Dosage: 20 MG PER DAY ORAL
     Route: 048
     Dates: start: 20050401

REACTIONS (2)
  - OVERDOSE [None]
  - SUICIDE ATTEMPT [None]
